FAERS Safety Report 10254470 (Version 1)
Quarter: 2014Q2

REPORT INFORMATION
  Report Type: Spontaneous
  Country: US (occurrence: US)
  Receive Date: 20140624
  Receipt Date: 20140624
  Transmission Date: 20141212
  Serious: No
  Sender: FDA-Public Use
  Company Number: US-BIOGENIDEC-2014BI058135

PATIENT
  Sex: Male

DRUGS (2)
  1. TECFIDERA [Suspect]
     Indication: RELAPSING-REMITTING MULTIPLE SCLEROSIS
  2. TYSABRI [Concomitant]
     Indication: MULTIPLE SCLEROSIS
     Route: 042
     Dates: start: 20050217

REACTIONS (6)
  - Blood urine present [Not Recovered/Not Resolved]
  - Haematochezia [Not Recovered/Not Resolved]
  - Influenza [Unknown]
  - Pyrexia [Unknown]
  - Flushing [Unknown]
  - Abdominal discomfort [Recovered/Resolved]
